FAERS Safety Report 19061736 (Version 1)
Quarter: 2021Q1

REPORT INFORMATION
  Report Type: Spontaneous
  Country: GB (occurrence: GB)
  Receive Date: 20210325
  Receipt Date: 20210325
  Transmission Date: 20210420
  Serious: Yes (Other)
  Sender: FDA-Public Use
  Company Number: GB-CELLTRION INC.-2021GB003937

PATIENT

DRUGS (1)
  1. REMSIMA [Suspect]
     Active Substance: INFLIXIMAB
     Indication: RHEUMATOID ARTHRITIS
     Dosage: 120 MG FORTNIGHTLY
     Route: 058

REACTIONS (3)
  - Rheumatoid arthritis [Unknown]
  - Device malfunction [Unknown]
  - Product dose omission issue [Unknown]
